FAERS Safety Report 7018493-2 (Version None)
Quarter: 2010Q3

REPORT INFORMATION
  Report Type: 
  Country: None (occurrence: None)
  Receive Date: 20100928
  Receipt Date: 20100921
  Transmission Date: 20110219
  Serious: Yes (Hospitalization, Other)
  Sender: FDA-Public Use
  Company Number: US-PURDUE-USA-2010-0047429

PATIENT
  Age: 67 Year
  Sex: Female
  Weight: 63.8 kg

DRUGS (19)
  1. MS CONTIN [Suspect]
     Indication: RADIATION ASSOCIATED PAIN
     Dosage: 30 MG, TID
     Dates: end: 20100725
  2. MS CONTIN [Suspect]
     Indication: MYOSITIS
  3. OXYCONTIN [Suspect]
     Indication: RADIATION ASSOCIATED PAIN
     Dosage: 5 MG, Q2H
     Route: 048
     Dates: start: 20080101
  4. OXYCONTIN [Suspect]
     Indication: MYOSITIS
  5. NEURONTIN [Suspect]
     Indication: RADIATION ASSOCIATED PAIN
     Dosage: 900 MG, TID
  6. NEURONTIN [Suspect]
     Indication: MYOSITIS
  7. DEXAMETHASONE [Suspect]
     Indication: PRODUCT USED FOR UNKNOWN INDICATION
  8. RADIATION [Concomitant]
     Indication: RADIOTHERAPY
     Dosage: UNK
     Dates: start: 20100721, end: 20100812
  9. VICODIN [Concomitant]
     Indication: RADIATION ASSOCIATED PAIN
  10. VICODIN [Concomitant]
     Indication: MYOSITIS
  11. FOSAMAX [Concomitant]
     Indication: PRODUCT USED FOR UNKNOWN INDICATION
     Dosage: 5 MG, UNK
     Route: 048
  12. ASCORBIC ACID [Concomitant]
     Indication: SUPPLEMENTATION THERAPY
     Dosage: 1000 MG, DAILY
     Route: 048
  13. ERGOCALCIFEROL [Concomitant]
     Indication: SUPPLEMENTATION THERAPY
     Dosage: 400 UNIT, DAILY
     Route: 048
  14. FOLIC ACID [Concomitant]
     Indication: SUPPLEMENTATION THERAPY
     Dosage: 0.4 MG, DAILY
     Route: 048
  15. GARLIC                             /01570501/ [Concomitant]
     Indication: SUPPLEMENTATION THERAPY
     Dosage: 1 MG, DAILY
  16. SYNTHROID [Concomitant]
     Indication: HYPOTHYROIDISM
     Dosage: 25 MCG, DAILY
     Route: 048
  17. MULTI-VITAMINS [Concomitant]
     Indication: SUPPLEMENTATION THERAPY
     Dosage: 1 DF, DAILY
     Route: 048
  18. K-DUR [Concomitant]
     Indication: HYPOKALAEMIA
     Dosage: 20 MEQ, DAILY
  19. VITAMIN E                          /00110501/ [Concomitant]
     Indication: SUPPLEMENTATION THERAPY
     Dosage: 1000 UNIT, UNK
     Route: 048

REACTIONS (2)
  - ENCEPHALOPATHY [None]
  - NEUROTOXICITY [None]
